FAERS Safety Report 12162668 (Version 7)
Quarter: 2016Q3

REPORT INFORMATION
  Report Type: Report from Study
  Country: CA (occurrence: CA)
  Receive Date: 20160309
  Receipt Date: 20160721
  Transmission Date: 20161109
  Serious: Yes (Other)
  Sender: FDA-Public Use
  Company Number: PHHY2016CA020967

PATIENT
  Age: 69 Year
  Sex: Male

DRUGS (11)
  1. TAFINLAR [Interacting]
     Active Substance: DABRAFENIB MESYLATE
     Dosage: 225 MG, QD (125 MG IN AM AND 100 MG IN PM)
     Route: 048
  2. TAFINLAR [Suspect]
     Active Substance: DABRAFENIB MESYLATE
     Indication: METASTATIC MALIGNANT MELANOMA
     Dosage: 300 MG, QD
     Route: 048
     Dates: start: 20160210
  3. TAFINLAR [Interacting]
     Active Substance: DABRAFENIB MESYLATE
     Dosage: 100 MG, BID
     Route: 048
  4. TAFINLAR [Interacting]
     Active Substance: DABRAFENIB MESYLATE
     Dosage: 150 MG, QD
     Route: 048
     Dates: end: 20160213
  5. TAFINLAR [Interacting]
     Active Substance: DABRAFENIB MESYLATE
     Dosage: 75 MG, QD
     Route: 048
  6. MEKINIST [Interacting]
     Active Substance: TRAMETINIB DIMETHYL SULFOXIDE
     Indication: METASTATIC MALIGNANT MELANOMA
     Dosage: 2 MG, QD
     Route: 048
     Dates: start: 20160210
  7. TAFINLAR [Interacting]
     Active Substance: DABRAFENIB MESYLATE
     Dosage: 75 MG, BID
     Route: 048
  8. TAFINLAR [Interacting]
     Active Substance: DABRAFENIB MESYLATE
     Dosage: 150 MG, QD
     Route: 048
  9. SELEGILINE [Interacting]
     Active Substance: SELEGILINE
     Indication: PRODUCT USED FOR UNKNOWN INDICATION
     Route: 065
  10. TAFINLAR [Interacting]
     Active Substance: DABRAFENIB MESYLATE
     Dosage: 225 MG, QD (75 MG IN AM AND 150  MG IN PM)
     Route: 048
  11. TAFINLAR [Interacting]
     Active Substance: DABRAFENIB MESYLATE
     Dosage: 150 MG, BID
     Route: 048

REACTIONS (17)
  - Parkinsonism [Unknown]
  - Fatigue [Unknown]
  - Eczema asteatotic [Unknown]
  - Skin discolouration [Unknown]
  - Balance disorder [Unknown]
  - Drug intolerance [Unknown]
  - Gait disturbance [Unknown]
  - Pyrexia [Unknown]
  - Hyperhidrosis [Unknown]
  - Hallucination [Unknown]
  - Chills [Unknown]
  - Tremor [Unknown]
  - Drug interaction [Unknown]
  - Dysstasia [Unknown]
  - Hot flush [Unknown]
  - Asthenia [Unknown]
  - Peripheral swelling [Recovering/Resolving]

NARRATIVE: CASE EVENT DATE: 20160216
